FAERS Safety Report 17374871 (Version 2)
Quarter: 2020Q1

REPORT INFORMATION
  Report Type: Spontaneous
  Country: BE (occurrence: BE)
  Receive Date: 20200205
  Receipt Date: 20200303
  Transmission Date: 20200409
  Serious: Yes (Other)
  Sender: FDA-Public Use
  Company Number: BE-MYLANLABS-2020M1012605

PATIENT
  Age: 66 Year
  Sex: Male

DRUGS (5)
  1. TADALAFIL SANDOZ [Concomitant]
     Indication: PRODUCT USED FOR UNKNOWN INDICATION
     Dosage: 5 MILLIGRAM, QD
     Route: 048
  2. SILDENAFIL SANDOZ [Concomitant]
     Indication: ERECTILE DYSFUNCTION
     Dosage: 100 MILLIGRAM, AS NEEDED
     Route: 048
  3. SPEDRA [Concomitant]
     Active Substance: AVANAFIL
     Indication: PRODUCT USED FOR UNKNOWN INDICATION
     Dosage: 200 MILLIGRAM, AS NEEDED
     Route: 048
  4. VALTRAN                            /00628301/ [Concomitant]
     Active Substance: NALOXONE HYDROCHLORIDE\TILIDINE HYDROCHLORIDE
     Indication: MUSCULOSKELETAL PAIN
     Dosage: 60 GTT DROPS, QD
     Route: 048
     Dates: start: 2015
  5. TADALAFIL. [Suspect]
     Active Substance: TADALAFIL
     Indication: ERECTILE DYSFUNCTION
     Dosage: 20 MILLIGRAM, AS NEEDED
     Route: 048
     Dates: start: 201912

REACTIONS (1)
  - Drug ineffective [Unknown]
